FAERS Safety Report 22273015 (Version 1)
Quarter: 2023Q2

REPORT INFORMATION
  Report Type: Spontaneous
  Country: US (occurrence: None)
  Receive Date: 20230501
  Receipt Date: 20230501
  Transmission Date: 20230721
  Serious: No
  Sender: FDA-Public Use
  Company Number: None

PATIENT
  Age: 71 Year
  Sex: Male
  Weight: 82.46 kg

DRUGS (8)
  1. ABIRATERONE ACETATE [Suspect]
     Active Substance: ABIRATERONE ACETATE
     Indication: Prostate cancer
     Dosage: FREQUENCY : DAILY;?
     Route: 048
     Dates: start: 20230121, end: 20230501
  2. AMLODIPINE [Concomitant]
  3. ATORVASTATIN [Concomitant]
  4. LUPRON [Concomitant]
  5. Multivitamin [Concomitant]
  6. PREDNISONE [Concomitant]
     Active Substance: PREDNISONE
  7. Calcium Citrate+D3 [Concomitant]
  8. XGEVA [Concomitant]
     Active Substance: DENOSUMAB

REACTIONS (2)
  - Prostate cancer [None]
  - Malignant neoplasm progression [None]
